FAERS Safety Report 16403743 (Version 2)
Quarter: 2019Q4

REPORT INFORMATION
  Report Type: Report from Study
  Country: None (occurrence: CA)
  Receive Date: 20190607
  Receipt Date: 20191116
  Transmission Date: 20200122
  Serious: Yes (Other)
  Sender: FDA-Public Use
  Company Number: CA-ABBVIE-19K-028-2810868-00

PATIENT
  Age: 87 Year
  Sex: Male

DRUGS (1)
  1. LUPRON DEPOT [Suspect]
     Active Substance: LEUPROLIDE ACETATE
     Indication: PROSTATE CANCER
     Route: 030
     Dates: start: 20180717, end: 201902

REACTIONS (3)
  - Glaucoma [Unknown]
  - Blindness unilateral [Not Recovered/Not Resolved]
  - Optic nerve injury [Unknown]

NARRATIVE: CASE EVENT DATE: 201905
